FAERS Safety Report 21944937 (Version 1)
Quarter: 2023Q1

REPORT INFORMATION
  Report Type: Spontaneous
  Country: US (occurrence: None)
  Receive Date: 20230202
  Receipt Date: 20230202
  Transmission Date: 20230417
  Serious: Yes (Other)
  Sender: FDA-Public Use
  Company Number: 2023A025019

PATIENT
  Age: 72 Year
  Sex: Male

DRUGS (3)
  1. FARXIGA [Suspect]
     Active Substance: DAPAGLIFLOZIN PROPANEDIOL
     Route: 048
  2. SOLOSTAR [Suspect]
     Active Substance: DEVICE
     Indication: Type 2 diabetes mellitus
  3. SOLIQUA 100/33 [Suspect]
     Active Substance: INSULIN GLARGINE\LIXISENATIDE
     Indication: Type 2 diabetes mellitus

REACTIONS (5)
  - Diabetes mellitus inadequate control [Unknown]
  - Blood glucose increased [Not Recovered/Not Resolved]
  - Glycosylated haemoglobin abnormal [Unknown]
  - Drug ineffective [Unknown]
  - Device issue [Unknown]
